FAERS Safety Report 14728613 (Version 1)
Quarter: 2018Q2

REPORT INFORMATION
  Report Type: Not Available
  Country: US (occurrence: US)
  Receive Date: 20180406
  Receipt Date: 20180406
  Transmission Date: 20180711
  Serious: No
  Sender: FDA-Public Use
  Company Number: US-NEUROCRINE BIOSCIENCES INC.-2018NBI00369

PATIENT
  Sex: Female

DRUGS (13)
  1. INGREZZA [Suspect]
     Active Substance: VALBENAZINE
     Indication: TARDIVE DYSKINESIA
     Route: 048
     Dates: start: 20170921, end: 20180105
  2. METFORMIN [Concomitant]
     Active Substance: METFORMIN HYDROCHLORIDE
  3. TYLENOL [Concomitant]
     Active Substance: ACETAMINOPHEN
  4. GLUCOSAMINE [Concomitant]
     Active Substance: GLUCOSAMINE
  5. KLONOPIN [Concomitant]
     Active Substance: CLONAZEPAM
  6. CALCIUM [Concomitant]
     Active Substance: CALCIUM
  7. VITAMIN B12 [Concomitant]
     Active Substance: CYANOCOBALAMIN
  8. FLUOXETINE [Concomitant]
     Active Substance: FLUOXETINE HYDROCHLORIDE
  9. OLANZAPINE. [Concomitant]
     Active Substance: OLANZAPINE
  10. LISINOPRIL. [Concomitant]
     Active Substance: LISINOPRIL
  11. MIRTAZAPINE. [Concomitant]
     Active Substance: MIRTAZAPINE
  12. MAGNESIUM [Concomitant]
     Active Substance: MAGNESIUM
  13. ATORVASTATIN [Concomitant]
     Active Substance: ATORVASTATIN

REACTIONS (3)
  - Dizziness [Unknown]
  - Disorientation [Unknown]
  - Somnolence [Unknown]
